FAERS Safety Report 12817965 (Version 1)
Quarter: 2016Q4

REPORT INFORMATION
  Report Type: Spontaneous
  Country: NZ (occurrence: NZ)
  Receive Date: 20161005
  Receipt Date: 20161005
  Transmission Date: 20170207
  Serious: Yes (Other)
  Sender: FDA-Public Use
  Company Number: NZ-ELI_LILLY_AND_COMPANY-NZ201609010754

PATIENT
  Age: 46 Year
  Sex: Male

DRUGS (1)
  1. ZYPREXA RELPREVV [Suspect]
     Active Substance: OLANZAPINE PAMOATE
     Indication: PRODUCT USED FOR UNKNOWN INDICATION
     Dosage: 405 MG, 2/M (EVERY 2 WEEKS)
     Route: 030

REACTIONS (10)
  - Tachycardia [Recovered/Resolved]
  - Blood pressure decreased [Recovered/Resolved]
  - Prescribed overdose [Unknown]
  - Somnolence [Recovered/Resolved]
  - White blood cell count increased [Unknown]
  - Respiratory depression [Recovered/Resolved]
  - Sedation [Not Recovered/Not Resolved]
  - Pneumonia [Unknown]
  - Loss of consciousness [Recovered/Resolved]
  - Body temperature increased [Unknown]
